FAERS Safety Report 9935597 (Version 1)
Quarter: 2014Q1

REPORT INFORMATION
  Report Type: Spontaneous
  Country: TR (occurrence: TR)
  Receive Date: 20140228
  Receipt Date: 20140228
  Transmission Date: 20141002
  Serious: Yes (Other)
  Sender: FDA-Public Use
  Company Number: TR-BAXTER-2014BAX009004

PATIENT
  Age: 26 Year
  Sex: Female

DRUGS (7)
  1. KIOVIG 2.5/25 ML IV INF?ZYON I?IN ??ZELTI I?EREN FLAKON [Suspect]
     Indication: IMMUNE THROMBOCYTOPENIC PURPURA
     Dosage: 0.4 G/KG
     Route: 065
  2. METHYLPREDNISOLONE [Suspect]
     Indication: IMMUNE THROMBOCYTOPENIC PURPURA
     Route: 065
  3. ELTROMBOPAG [Suspect]
     Indication: IMMUNE THROMBOCYTOPENIC PURPURA
     Route: 065
  4. ELTROMBOPAG [Suspect]
     Route: 065
  5. DANAZOL [Suspect]
     Indication: IMMUNE THROMBOCYTOPENIC PURPURA
     Route: 065
  6. DANAZOL [Suspect]
     Route: 065
  7. VINCRISTINE [Suspect]
     Indication: IMMUNE THROMBOCYTOPENIC PURPURA
     Route: 065

REACTIONS (2)
  - Intracardiac thrombus [Unknown]
  - Pulmonary artery thrombosis [Unknown]
